FAERS Safety Report 12919577 (Version 1)
Quarter: 2016Q4

REPORT INFORMATION
  Report Type: Spontaneous
  Country: US (occurrence: US)
  Receive Date: 20161103
  Receipt Date: 20161103
  Transmission Date: 20170207
  Serious: No
  Sender: FDA-Public Use
  Company Number: None

PATIENT
  Age: 56 Year
  Sex: Male

DRUGS (1)
  1. LUMIZYME [Suspect]
     Active Substance: ALGLUCOSIDASE ALFA
     Indication: GLYCOGEN STORAGE DISEASE TYPE II
     Dosage: LUMIZYME 1750 MG - IV - EVERY 2 WEEKS
     Route: 042
     Dates: start: 20140702

REACTIONS (1)
  - Poor venous access [None]

NARRATIVE: CASE EVENT DATE: 20161030
